FAERS Safety Report 8866073 (Version 1)
Quarter: 2012Q4

REPORT INFORMATION
  Report Type: 
  Country: JP (occurrence: JP)
  Receive Date: 20121025
  Receipt Date: 20121025
  Transmission Date: 20130627
  Serious: Yes (Hospitalization)
  Sender: FDA-Public Use
  Company Number: JP-PFIZER INC-2012254554

PATIENT
  Age: 85 Year
  Sex: Male

DRUGS (5)
  1. CISPLATIN [Suspect]
     Indication: METASTATIC GASTRIC CANCER
     Dosage: UNK
  2. DOCETAXEL [Suspect]
     Indication: METASTATIC GASTRIC CANCER
     Dosage: UNK
  3. PACLITAXEL [Suspect]
     Indication: METASTATIC GASTRIC CANCER
     Dosage: 120 mg/body, 3 weeks on medication with 1 week off
  4. FLUOROURACIL [Suspect]
     Indication: METASTATIC GASTRIC CANCER
     Dosage: 1250 mg, weekly
  5. GIMERACIL\OTERACIL POTASSIUM\TEGAFUR [Suspect]
     Indication: METASTATIC GASTRIC CANCER
     Dosage: UNK

REACTIONS (6)
  - Mucosal inflammation [Unknown]
  - Dysphagia [Unknown]
  - Decreased appetite [Unknown]
  - Disease progression [Unknown]
  - Metastases to lung [Unknown]
  - Metastases to lymph nodes [Unknown]
